FAERS Safety Report 16994050 (Version 1)
Quarter: 2019Q4

REPORT INFORMATION
  Report Type: Spontaneous
  Country: US (occurrence: US)
  Receive Date: 20190923
  Receipt Date: 20190923
  Transmission Date: 20200122
  Serious: Yes (Other)
  Sender: FDA-Public Use
  Company Number: None

PATIENT
  Age: 76 Year
  Sex: Male
  Weight: 89.36 kg

DRUGS (13)
  1. COENZYME Q10 [Concomitant]
     Active Substance: UBIDECARENONE
  2. B12 SHOT [Concomitant]
  3. ZOCOR [Concomitant]
     Active Substance: SIMVASTATIN
  4. LUTEIN FOR EYES [Concomitant]
  5. BIOTIN [Concomitant]
     Active Substance: BIOTIN
  6. LEVAQUIN [Suspect]
     Active Substance: LEVOFLOXACIN
     Indication: URINARY TRACT INFECTION
     Dosage: ?          QUANTITY:1 DF DOSAGE FORM;?
     Route: 048
     Dates: start: 20190815, end: 20190819
  7. CURCUMIN [Concomitant]
     Active Substance: CURCUMIN
  8. VITAMIN D3 [Concomitant]
     Active Substance: CHOLECALCIFEROL
  9. LANTUS [Concomitant]
     Active Substance: INSULIN GLARGINE
  10. TURMERIC [Concomitant]
     Active Substance: HERBALS\TURMERIC
  11. CINNAMON. [Concomitant]
     Active Substance: CINNAMON
  12. 81 MG ASPIRIN [Concomitant]
     Active Substance: ASPIRIN
  13. DONEPEZIL. [Concomitant]
     Active Substance: DONEPEZIL

REACTIONS (3)
  - Confusional state [None]
  - Hallucination [None]
  - Memory impairment [None]

NARRATIVE: CASE EVENT DATE: 20190817
